FAERS Safety Report 10174041 (Version 1)
Quarter: 2014Q2

REPORT INFORMATION
  Report Type: Spontaneous
  Country: FR (occurrence: FR)
  Receive Date: 20140515
  Receipt Date: 20140515
  Transmission Date: 20141212
  Serious: Yes (Hospitalization)
  Sender: FDA-Public Use
  Company Number: FR-B.I. PHARMACEUTICALS,INC./RIDGEFIELD-2014-BI-20325FF

PATIENT
  Age: 79 Year
  Sex: Male

DRUGS (6)
  1. PRADAXA [Suspect]
     Indication: PRODUCT USED FOR UNKNOWN INDICATION
     Dosage: 220 MG
     Route: 048
     Dates: start: 20131125, end: 201404
  2. PROCORALAN [Concomitant]
     Dosage: 15 MG
     Route: 048
     Dates: start: 201311
  3. CANDESARTAN CILEXETIL [Concomitant]
     Dosage: 16 MG
     Route: 048
     Dates: start: 201107
  4. FLIXOTIDE [Concomitant]
     Dosage: 500 NR
     Route: 055
     Dates: start: 201107
  5. NAPROXENE [Concomitant]
     Dosage: 1100 NR
     Route: 048
  6. INEGY [Concomitant]
     Dosage: DOSE PER APPLICATION AND DAILY DOSE: 10 MG / 20 MG
     Route: 048

REACTIONS (1)
  - Ischaemic stroke [Recovered/Resolved]
